FAERS Safety Report 18612671 (Version 2)
Quarter: 2021Q4

REPORT INFORMATION
  Report Type: Spontaneous
  Country: DE (occurrence: DE)
  Receive Date: 20201214
  Receipt Date: 20211103
  Transmission Date: 20220303
  Serious: Yes (Other)
  Sender: FDA-Public Use
  Company Number: DE-KRAMERLABS-2020-DE-000309

PATIENT
  Age: 34 Year
  Sex: Female
  Weight: 96.4 kg

DRUGS (2)
  1. CANDESARTAN CILEXETIL [Suspect]
     Active Substance: CANDESARTAN CILEXETIL
     Indication: Hypertension
     Dosage: UNKNOWN DOSE AND FREQUENCY
     Route: 048
     Dates: start: 20190901, end: 20200422
  2. LEVOTHYROXINE [Concomitant]
     Active Substance: LEVOTHYROXINE
     Dosage: UNKNOWN DOSE AND FREQUENCY
     Route: 048
     Dates: start: 20190901, end: 20200607

REACTIONS (3)
  - Exposure during pregnancy [Unknown]
  - Oligohydramnios [Recovered/Resolved]
  - Gestational diabetes [Recovered/Resolved]
